FAERS Safety Report 9614502 (Version 1)
Quarter: 2013Q4

REPORT INFORMATION
  Report Type: Spontaneous
  Country: US (occurrence: None)
  Receive Date: 20131009
  Receipt Date: 20131009
  Transmission Date: 20140711
  Serious: Yes (Hospitalization)
  Sender: FDA-Public Use
  Company Number: None

PATIENT
  Age: 61 Year
  Sex: Male
  Weight: 125.9 kg

DRUGS (1)
  1. SULFAMETHOXAZOLE/ TRIMETHOPRIM [Suspect]
     Indication: SKIN INFECTION
     Route: 048
     Dates: start: 20130221, end: 20130303

REACTIONS (3)
  - Renal failure acute [None]
  - Nephropathy toxic [None]
  - Gout [None]
